FAERS Safety Report 10730394 (Version 1)
Quarter: 2015Q1

REPORT INFORMATION
  Report Type: Spontaneous
  Country: US (occurrence: None)
  Receive Date: 20150121
  Receipt Date: 20150121
  Transmission Date: 20150721
  Serious: No
  Sender: FDA-Public Use
  Company Number: None

PATIENT
  Age: 41 Year
  Sex: Female
  Weight: 68.04 kg

DRUGS (1)
  1. TAMIFLU [Suspect]
     Active Substance: OSELTAMIVIR PHOSPHATE
     Indication: INFLUENZA
     Dosage: 10 PILLS TWICE DAILY TAKEN BY MOUTH
     Route: 048
     Dates: start: 20150116, end: 20150118

REACTIONS (3)
  - Rash generalised [None]
  - Hypersensitivity [None]
  - Rash maculo-papular [None]

NARRATIVE: CASE EVENT DATE: 20150119
